FAERS Safety Report 9336387 (Version 4)
Quarter: 2013Q3

REPORT INFORMATION
  Report Type: Spontaneous
  Country: JP (occurrence: JP)
  Receive Date: 20130607
  Receipt Date: 20130927
  Transmission Date: 20140515
  Serious: Yes (Hospitalization)
  Sender: FDA-Public Use
  Company Number: JP-JNJFOC-20130523088

PATIENT
  Age: 90 Year
  Sex: Male

DRUGS (11)
  1. FINIBAX [Suspect]
     Indication: PLEURAL INFECTION BACTERIAL
     Route: 041
     Dates: start: 20130526, end: 20130527
  2. PREDONINE [Concomitant]
     Indication: METASTASES TO LUNG
     Route: 065
     Dates: start: 20130526, end: 20130527
  3. PREDONINE [Concomitant]
     Indication: PLEURAL INFECTION BACTERIAL
     Route: 065
     Dates: start: 20130526, end: 20130527
  4. PREDONINE [Concomitant]
     Indication: LUNG INFILTRATION
     Route: 065
     Dates: start: 20130526, end: 20130527
  5. MAGMITT [Concomitant]
     Route: 048
     Dates: start: 20130526, end: 20130528
  6. BFLUID [Concomitant]
     Route: 041
     Dates: start: 20130526
  7. SAWATENE [Concomitant]
     Route: 048
     Dates: start: 20130526, end: 20130528
  8. NICHISTATE [Concomitant]
     Route: 048
     Dates: start: 20130526, end: 20130528
  9. BAYASPIRIN [Concomitant]
     Route: 048
     Dates: start: 20130526, end: 20130528
  10. URIEF [Concomitant]
     Indication: BENIGN PROSTATIC HYPERPLASIA
     Route: 048
     Dates: start: 20130526, end: 20130528
  11. HOKUNALIN [Concomitant]
     Route: 062
     Dates: start: 20130526, end: 20130528

REACTIONS (1)
  - Hepatic function abnormal [Recovered/Resolved]
